FAERS Safety Report 9432433 (Version 1)
Quarter: 2013Q3

REPORT INFORMATION
  Report Type: Spontaneous
  Country: US (occurrence: None)
  Receive Date: 20130730
  Receipt Date: 20130730
  Transmission Date: 20140515
  Serious: Yes (Other)
  Sender: FDA-Public Use
  Company Number: None

PATIENT
  Age: 50 Year
  Sex: Female

DRUGS (9)
  1. LAMICTAL [Suspect]
     Indication: DEPRESSION
     Dosage: STARTING DOSE TIMES TWO PILLS ONCE BY MOUTH
     Route: 048
     Dates: start: 20111208, end: 20111228
  2. LAMICTAL [Suspect]
     Indication: ANXIETY
     Dosage: STARTING DOSE TIMES TWO PILLS ONCE BY MOUTH
     Route: 048
     Dates: start: 20111208, end: 20111228
  3. TRIAMTERENE HCTZ [Concomitant]
  4. FAMCICLOVIR [Concomitant]
  5. FLUOXETINE [Concomitant]
  6. BUPROPION [Concomitant]
  7. OCC [Concomitant]
  8. ADVIL [Concomitant]
  9. 1-DAY VITAMIN [Concomitant]

REACTIONS (5)
  - Hypophagia [None]
  - Weight decreased [None]
  - Infrequent bowel movements [None]
  - Urticaria [None]
  - Gastrooesophageal reflux disease [None]
